FAERS Safety Report 4669227-8 (Version None)
Quarter: 2005Q2

REPORT INFORMATION
  Report Type: 
  Country: None (occurrence: None)
  Receive Date: 20050519
  Receipt Date: 20031120
  Transmission Date: 20051028
  Serious: Yes (Hospitalization)
  Sender: FDA-Public Use
  Company Number: 176105

PATIENT
  Age: 51 Year
  Sex: Female

DRUGS (9)
  1. AVONEX [Suspect]
     Indication: MULTIPLE SCLEROSIS
     Dosage: 30 UG;QW;IM
     Route: 030
     Dates: start: 20020502, end: 20030301
  2. ACEMETACIN [Concomitant]
  3. DICLOFENAC (DICLO) [Concomitant]
  4. FLUPIRTINAMLEAT [Concomitant]
  5. PANTOPRAZOL [Concomitant]
  6. METOPROLOL SUCCINATE [Concomitant]
  7. HYDROCHLOROTHIAZID [Concomitant]
  8. TIZANIDIM (SIRDALUD) [Concomitant]
  9. CACLOFEN (LIORESAL) [Concomitant]

REACTIONS (7)
  - ABDOMINAL PAIN UPPER [None]
  - CONDITION AGGRAVATED [None]
  - DRUG WITHDRAWAL SYNDROME [None]
  - GASTROINTESTINAL ULCER [None]
  - NAUSEA [None]
  - PERFORATED ULCER [None]
  - URINARY TRACT INFECTION [None]
